FAERS Safety Report 7078132-1 (Version None)
Quarter: 2010Q4

REPORT INFORMATION
  Report Type: 
  Country: None (occurrence: None)
  Receive Date: 20101102
  Receipt Date: 20101025
  Transmission Date: 20110411
  Serious: No
  Sender: FDA-Public Use
  Company Number: US-BIOGENIDEC-2010BI037711

PATIENT
  Sex: Female

DRUGS (3)
  1. TYSABRI [Suspect]
     Indication: MULTIPLE SCLEROSIS
     Route: 042
     Dates: start: 20050221, end: 20050221
  2. TYSABRI [Suspect]
     Route: 042
     Dates: start: 20070720, end: 20071120
  3. TYSABRI [Suspect]
     Route: 042
     Dates: start: 20080304

REACTIONS (7)
  - ABDOMINAL DISCOMFORT [None]
  - ASTHENIA [None]
  - DEPRESSION [None]
  - FATIGUE [None]
  - MALAISE [None]
  - PAIN [None]
  - SPONDYLITIS [None]
